FAERS Safety Report 12893382 (Version 1)
Quarter: 2016Q4

REPORT INFORMATION
  Report Type: Spontaneous
  Country: US (occurrence: US)
  Receive Date: 20161027
  Receipt Date: 20161027
  Transmission Date: 20170207
  Serious: Yes (Life-Threatening, Hospitalization, Disabling, Other)
  Sender: FDA-Public Use
  Company Number: None

PATIENT
  Age: 64 Year
  Sex: Male
  Weight: 99.88 kg

DRUGS (4)
  1. TANZOLOSIN [Concomitant]
  2. RENAL MEDICATIONS (INCLUDING DIALYSIS) [Concomitant]
  3. LABETALOL [Suspect]
     Active Substance: LABETALOL\LABETALOL HYDROCHLORIDE
     Dosage: 1 1/2 PILLS EVERY 8 HOURS BY MOUTH
     Route: 048
     Dates: start: 20140405, end: 20140408
  4. NEFINIPINE [Concomitant]

REACTIONS (7)
  - Overdose [None]
  - Wrong drug administered [None]
  - Toxicity to various agents [None]
  - End stage renal disease [None]
  - Drug dispensing error [None]
  - Life expectancy shortened [None]
  - Acute kidney injury [None]

NARRATIVE: CASE EVENT DATE: 20140409
